FAERS Safety Report 23137079 (Version 1)
Quarter: 2023Q4

REPORT INFORMATION
  Report Type: Report from Study
  Country: CO (occurrence: CO)
  Receive Date: 20231102
  Receipt Date: 20231102
  Transmission Date: 20240109
  Serious: Yes (Death)
  Sender: FDA-Public Use
  Company Number: CO-ABBVIE-5477533

PATIENT
  Sex: Female

DRUGS (1)
  1. ZEMPLAR [Suspect]
     Active Substance: PARICALCITOL
     Indication: Chronic kidney disease
     Route: 065
     Dates: start: 20230529, end: 20230811

REACTIONS (1)
  - Cardiac arrest [Fatal]

NARRATIVE: CASE EVENT DATE: 20230101
